FAERS Safety Report 24431732 (Version 1)
Quarter: 2024Q4

REPORT INFORMATION
  Report Type: Spontaneous
  Country: GB (occurrence: GB)
  Receive Date: 20241014
  Receipt Date: 20241014
  Transmission Date: 20250115
  Serious: Yes (Disabling, Other)
  Sender: AUROBINDO
  Company Number: GB-MHRA-32764593

PATIENT

DRUGS (2)
  1. ESCITALOPRAM [Suspect]
     Active Substance: ESCITALOPRAM OXALATE
     Indication: Anxiety
     Dosage: UNK
     Route: 065
  2. ESCITALOPRAM [Suspect]
     Active Substance: ESCITALOPRAM OXALATE
     Indication: Insomnia

REACTIONS (37)
  - Pain [Unknown]
  - Affective disorder [Unknown]
  - Arthralgia [Unknown]
  - Cognitive disorder [Unknown]
  - Diabetes mellitus inadequate control [Unknown]
  - Dysphagia [Unknown]
  - Gastrointestinal disorder [Unknown]
  - Hepatic lesion [Unknown]
  - Hypotonia [Unknown]
  - Haemoptysis [Unknown]
  - Temperature regulation disorder [Unknown]
  - Urine flow decreased [Unknown]
  - Urinary incontinence [Unknown]
  - Asthenia [Unknown]
  - Appetite disorder [Unknown]
  - Blood testosterone decreased [Unknown]
  - Cortisol increased [Unknown]
  - Dysuria [Unknown]
  - Disturbance in attention [Unknown]
  - Electric shock sensation [Unknown]
  - Genital erythema [Unknown]
  - Hypoaesthesia [Unknown]
  - Headache [Unknown]
  - Insomnia [Unknown]
  - Loss of libido [Unknown]
  - Lung hyperinflation [Unknown]
  - Muscle twitching [Unknown]
  - Nausea [Unknown]
  - Pollakiuria [Unknown]
  - Productive cough [Unknown]
  - Poor quality sleep [Unknown]
  - Respiratory disorder [Unknown]
  - Sinus disorder [Unknown]
  - Tongue disorder [Unknown]
  - Tongue coated [Unknown]
  - Urine abnormality [Unknown]
  - Urine odour abnormal [Unknown]
